FAERS Safety Report 4665983-3 (Version None)
Quarter: 2005Q2

REPORT INFORMATION
  Report Type: 
  Country: None (occurrence: None)
  Receive Date: 20050517
  Receipt Date: 20050408
  Transmission Date: 20051028
  Serious: No
  Sender: FDA-Public Use
  Company Number: S05-USA-01859-01

PATIENT
  Age: 82 Year
  Sex: Female

DRUGS (11)
  1. NAMENDA [Suspect]
     Indication: DEMENTIA ALZHEIMER'S TYPE
     Dosage: 5 MG QD PO
     Route: 048
     Dates: start: 20050407
  2. ARICEPT [Concomitant]
  3. NORVASC [Concomitant]
  4. SECTRAL [Concomitant]
  5. SYNTHROID [Concomitant]
  6. ASPIRIN [Concomitant]
  7. PRAVACHOL [Concomitant]
  8. PREDNISONE [Concomitant]
  9. THEOPHYLLINE [Concomitant]
  10. ADVAIR [Concomitant]
  11. ZOLOFT [Concomitant]

REACTIONS (1)
  - FEELING ABNORMAL [None]
